FAERS Safety Report 14099742 (Version 2)
Quarter: 2019Q3

REPORT INFORMATION
  Report Type: Spontaneous
  Country: US (occurrence: US)
  Receive Date: 20171017
  Receipt Date: 20190716
  Transmission Date: 20191004
  Serious: No
  Sender: FDA-Public Use
  Company Number: US-US WORLDMEDS, LLC-USW201708-001247

PATIENT
  Sex: Female

DRUGS (1)
  1. XADAGO [Suspect]
     Active Substance: SAFINAMIDE MESYLATE

REACTIONS (2)
  - Migraine [Unknown]
  - Overdose [Unknown]

NARRATIVE: CASE EVENT DATE: 20170823
